FAERS Safety Report 7360542-6 (Version None)
Quarter: 2011Q1

REPORT INFORMATION
  Report Type: 
  Country: None (occurrence: None)
  Receive Date: 20110310
  Receipt Date: 20110228
  Transmission Date: 20110831
  Serious: Yes (Hospitalization, Other)
  Sender: FDA-Public Use
  Company Number: 8028111

PATIENT
  Sex: Female

DRUGS (4)
  1. CERTOLIZUMAB PEGOL (CERTOLIZUMAB PEGOL) [Suspect]
     Indication: RHEUMATOID ARTHRITIS
     Dosage: (400 MG 1X/MONTH SUBCUTANEOUS)
     Route: 058
     Dates: start: 20030314
  2. INDOMETHACIN SODIUM [Concomitant]
  3. ESOMEPRAZOLE [Concomitant]
  4. DEPO PROVERA /00115201/ [Concomitant]

REACTIONS (8)
  - DIVERTICULITIS [None]
  - MUSCLE SPASMS [None]
  - NEUTROPHIL COUNT INCREASED [None]
  - WHITE BLOOD CELL COUNT INCREASED [None]
  - URINARY TRACT INFECTION [None]
  - CONSTIPATION [None]
  - BODY TEMPERATURE INCREASED [None]
  - FATIGUE [None]
